FAERS Safety Report 20638767 (Version 2)
Quarter: 2022Q2

REPORT INFORMATION
  Report Type: Spontaneous
  Country: US (occurrence: US)
  Receive Date: 20220325
  Receipt Date: 20220628
  Transmission Date: 20220721
  Serious: Yes (Hospitalization, Other)
  Sender: FDA-Public Use
  Company Number: US-INCYTE CORPORATION-2022IN002677

PATIENT

DRUGS (2)
  1. JAKAFI [Suspect]
     Active Substance: RUXOLITINIB
     Indication: Polycythaemia vera
     Dosage: 10 MILLIGRAM, BID
     Route: 048
     Dates: start: 20211210
  2. JAKAFI [Suspect]
     Active Substance: RUXOLITINIB
     Dosage: 10 MILLIGRAM, BID
     Route: 048
     Dates: start: 20211210

REACTIONS (10)
  - Pneumonia [Unknown]
  - Nail discolouration [Unknown]
  - Trichorrhexis [Unknown]
  - Alopecia [Recovering/Resolving]
  - Depressed mood [Unknown]
  - Sleep disorder [Unknown]
  - Laboratory test abnormal [Recovering/Resolving]
  - Seasonal allergy [Unknown]
  - Product dose omission in error [Unknown]
  - Weight increased [Unknown]
